FAERS Safety Report 6054505-0 (Version None)
Quarter: 2009Q1

REPORT INFORMATION
  Report Type: 
  Country: None (occurrence: None)
  Receive Date: 20090127
  Receipt Date: 20090114
  Transmission Date: 20090719
  Serious: Yes (Hospitalization, Other)
  Sender: FDA-Public Use
  Company Number: PHHY2009FR01950

PATIENT
  Age: 64 Year
  Sex: Female

DRUGS (6)
  1. NEORAL [Suspect]
     Dosage: 175 MG, BID
     Route: 048
     Dates: start: 20080922
  2. NEORAL [Suspect]
     Dosage: 100 MG, BID
     Route: 048
     Dates: start: 20081006, end: 20081030
  3. LYMPHOGLOBULINE [Suspect]
     Dosage: UNK
     Route: 042
     Dates: start: 20080917, end: 20080921
  4. SOLU-MEDROL [Suspect]
     Dosage: UNK
     Route: 042
     Dates: start: 20080917, end: 20081008
  5. SOLUPRED [Suspect]
     Dosage: UNK
     Route: 048
     Dates: start: 20081009, end: 20081028
  6. TACROLIMUS [Concomitant]

REACTIONS (10)
  - CEREBELLAR SYNDROME [None]
  - DYSARTHRIA [None]
  - ENCEPHALITIS [None]
  - FATIGUE [None]
  - HAEMORRHOIDS [None]
  - MOTOR DYSFUNCTION [None]
  - PANCYTOPENIA [None]
  - PARTIAL SEIZURES [None]
  - STATUS EPILEPTICUS [None]
  - TREMOR [None]
